FAERS Safety Report 8922840 (Version 1)
Quarter: 2012Q4

REPORT INFORMATION
  Report Type: 
  Country: US (occurrence: US)
  Receive Date: 20121123
  Receipt Date: 20121123
  Transmission Date: 20130627
  Serious: Yes (Death)
  Sender: FDA-Public Use
  Company Number: GXBR2012US002299

PATIENT
  Age: 50 Year
  Sex: Female

DRUGS (5)
  1. ENOXAPARIN SODIUM [Suspect]
     Indication: DEEP VEIN THROMBOSIS
     Dosage: 100 mg, BID
  2. MS CONTIN [Concomitant]
     Indication: CANCER PAIN
     Dosage: UNK DF, UNK
  3. DILAUDID [Concomitant]
     Indication: BREAKTHROUGH PAIN
     Dosage: UNK DF, UNK
  4. VICODIN [Concomitant]
     Indication: BREAKTHROUGH PAIN
     Dosage: UNK DF, UNK
  5. LEVOTHYROXINE [Concomitant]
     Indication: HYPOTHYROIDISM
     Dosage: UNK DF, UNK

REACTIONS (2)
  - Ovarian cancer recurrent [Fatal]
  - Disease progression [Fatal]
